FAERS Safety Report 9365371 (Version 1)
Quarter: 2013Q2

REPORT INFORMATION
  Report Type: Report from Study
  Country: US (occurrence: US)
  Receive Date: 20130625
  Receipt Date: 20130625
  Transmission Date: 20140414
  Serious: Yes (Hospitalization)
  Sender: FDA-Public Use
  Company Number: US-ROCHE-1240766

PATIENT
  Sex: Female

DRUGS (4)
  1. PULMOZYME [Suspect]
     Indication: CYSTIC FIBROSIS
     Route: 065
  2. NAPROSYN [Suspect]
     Indication: ARTHRITIS
     Route: 065
  3. AQUADEKS [Concomitant]
     Indication: CYSTIC FIBROSIS
  4. ALBUTEROL [Concomitant]
     Indication: CYSTIC FIBROSIS
     Route: 055

REACTIONS (2)
  - Haemoptysis [Recovering/Resolving]
  - Pneumonia [Recovering/Resolving]
